FAERS Safety Report 6246895-0 (Version None)
Quarter: 2009Q2

REPORT INFORMATION
  Report Type: 
  Country: None (occurrence: None)
  Receive Date: 20090626
  Receipt Date: 20090617
  Transmission Date: 20091009
  Serious: Yes (Other)
  Sender: FDA-Public Use
  Company Number: US-AMGEN-US352052

PATIENT
  Sex: Female

DRUGS (14)
  1. NEULASTA [Suspect]
     Indication: CHEMOTHERAPY
     Dates: start: 20090521
  2. RITUXAN [Concomitant]
     Dates: start: 20090520
  3. CYCLOPHOSPHAMIDE [Concomitant]
     Dates: start: 20090520
  4. DOXORUBICIN HCL [Concomitant]
     Dates: start: 20090520
  5. VINCRISTINE [Concomitant]
     Dates: start: 20090520
  6. PREDNISONE [Concomitant]
     Dates: start: 20090520
  7. LIPITOR [Concomitant]
  8. LOPRESSOR [Concomitant]
  9. AMIODARONE [Concomitant]
  10. LISINOPRIL [Concomitant]
  11. NEXIUM [Concomitant]
  12. SYNTHROID [Concomitant]
  13. IRON [Concomitant]
  14. INSULIN [Concomitant]

REACTIONS (1)
  - THERAPEUTIC RESPONSE DECREASED [None]
